FAERS Safety Report 7794812-4 (Version None)
Quarter: 2011Q4

REPORT INFORMATION
  Report Type: 
  Country: None (occurrence: None)
  Receive Date: 20111004
  Receipt Date: 20110927
  Transmission Date: 20120403
  Serious: No
  Sender: FDA-Public Use
  Company Number: US-PFIZER INC-2011230872

PATIENT
  Sex: Female

DRUGS (5)
  1. BENZYLPENICILLOYL-POLYLYSINE [Suspect]
     Dosage: UNK
  2. ACETYLSALICYLIC ACID SRT [Suspect]
     Dosage: UNK
  3. CODEINE SULFATE [Suspect]
     Dosage: UNK
  4. SULFUR [Suspect]
     Dosage: UNK
  5. MORPHINE [Suspect]
     Dosage: UNK

REACTIONS (1)
  - DRUG HYPERSENSITIVITY [None]
